FAERS Safety Report 19426360 (Version 1)
Quarter: 2021Q2

REPORT INFORMATION
  Report Type: Spontaneous
  Country: US (occurrence: US)
  Receive Date: 20210617
  Receipt Date: 20210617
  Transmission Date: 20210717
  Serious: Yes (Hospitalization, Other)
  Sender: FDA-Public Use
  Company Number: US-AUROBINDO-AUR-APL-2021-025015

PATIENT
  Sex: Male

DRUGS (1)
  1. IBUPROFEN. [Suspect]
     Active Substance: IBUPROFEN
     Indication: ANAPHYLACTIC REACTION
     Dosage: 150 MILLIGRAM
     Route: 048

REACTIONS (8)
  - Oral mucosal erythema [Recovered/Resolved]
  - Cough [Recovered/Resolved]
  - Wheezing [Recovered/Resolved]
  - Anaphylactic reaction [Recovered/Resolved]
  - Sneezing [Recovered/Resolved]
  - Rhinorrhoea [Recovered/Resolved]
  - Urticaria [Recovered/Resolved]
  - Periorbital oedema [Recovered/Resolved]
